FAERS Safety Report 8879494 (Version 2)
Quarter: 2012Q4

REPORT INFORMATION
  Report Type: Report from Study
  Country: DE (occurrence: DE)
  Receive Date: 20121101
  Receipt Date: 20121130
  Transmission Date: 20130627
  Serious: Yes (Death)
  Sender: FDA-Public Use
  Company Number: DE-ACTELION-A-US2012-73693

PATIENT
  Age: 79 Year
  Sex: Female

DRUGS (1)
  1. VENTAVIS [Suspect]
     Indication: PULMONARY ARTERIAL HYPERTENSION
     Dosage: 2.5 mcg, q4hrs
     Route: 055
     Dates: start: 20110426

REACTIONS (1)
  - Death [Fatal]
